FAERS Safety Report 9085611 (Version 1)
Quarter: 2013Q1

REPORT INFORMATION
  Report Type: Spontaneous
  Country: CZ (occurrence: CZ)
  Receive Date: 20130130
  Receipt Date: 20130130
  Transmission Date: 20140127
  Serious: Yes (Other)
  Sender: FDA-Public Use
  Company Number: PHHY2013CZ008029

PATIENT
  Sex: 0

DRUGS (2)
  1. CICLOSPORIN [Suspect]
  2. FLUVASTATIN [Suspect]

REACTIONS (3)
  - Rhabdomyolysis [Unknown]
  - Drug interaction [Unknown]
  - Drug level increased [Unknown]
